FAERS Safety Report 6822986-8 (Version None)
Quarter: 2010Q3

REPORT INFORMATION
  Report Type: 
  Country: None (occurrence: None)
  Receive Date: 20100708
  Receipt Date: 20100629
  Transmission Date: 20110219
  Serious: Yes (Hospitalization)
  Sender: FDA-Public Use
  Company Number: A0868977A

PATIENT
  Sex: Female
  Weight: 12.8 kg

DRUGS (3)
  1. CEFUROXIME [Suspect]
     Indication: PHARYNGITIS
     Dosage: 5ML TWICE PER DAY
     Route: 048
     Dates: start: 20100515, end: 20100520
  2. BROMPHENIRAMINE + PHENYLEPHRINE [Concomitant]
     Dates: start: 20100502, end: 20100601
  3. PREDSIM [Concomitant]
     Dosage: 3ML TWICE PER DAY
     Route: 048
     Dates: start: 20100515, end: 20100520

REACTIONS (2)
  - BRONCHITIS [None]
  - DRUG ADMINISTRATION ERROR [None]
